FAERS Safety Report 8757838 (Version 1)
Quarter: 2012Q4

REPORT INFORMATION
  Report Type: 
  Country: US (occurrence: US)
  Receive Date: 20120828
  Receipt Date: 20120828
  Transmission Date: 20130627
  Serious: Yes (Other)
  Sender: FDA-Public Use
  Company Number: US-ROCHE-CID000000002130392

PATIENT

DRUGS (3)
  1. AVASTIN [Suspect]
     Indication: COLORECTAL CANCER METASTATIC
  2. XELODA [Suspect]
     Indication: COLORECTAL CANCER METASTATIC
  3. OXALIPLATIN [Suspect]
     Indication: COLORECTAL CANCER METASTATIC

REACTIONS (11)
  - Diarrhoea [Unknown]
  - Nausea [Unknown]
  - Fatigue [Unknown]
  - Vomiting [Unknown]
  - Palmar-plantar erythrodysaesthesia syndrome [Unknown]
  - Neuropathy peripheral [Unknown]
  - Decreased appetite [Unknown]
  - Peripheral sensory neuropathy [Unknown]
  - Dehydration [Unknown]
  - Abdominal pain [Unknown]
  - Hypokalaemia [Unknown]
